FAERS Safety Report 4754977-5 (Version None)
Quarter: 2005Q3

REPORT INFORMATION
  Report Type: 
  Country: None (occurrence: None)
  Receive Date: 20050829
  Receipt Date: 20050816
  Transmission Date: 20060218
  Serious: Yes (Hospitalization)
  Sender: FDA-Public Use
  Company Number: JP-JNJFOC-20050602476

PATIENT
  Sex: Female

DRUGS (12)
  1. LEUSTATIN [Suspect]
  2. LEUSTATIN [Suspect]
  3. PREDNISOLONE [Suspect]
  4. MITOXANTRONE [Suspect]
  5. MITOXANTRONE [Suspect]
  6. HUMAN BLOOD PREPARATIONS [Concomitant]
  7. HUMAN BLOOD PREPARATIONS [Concomitant]
  8. HUMAN BLOOD PREPARATIONS [Concomitant]
  9. HUMAN BLOOD PREPARATIONS [Concomitant]
  10. HUMAN BLOOD PREPARATIONS [Concomitant]
  11. HUMAN BLOOD PREPARATIONS [Concomitant]
     Indication: DRUG USE FOR UNKNOWN INDICATION
  12. CEFPIROME [Concomitant]

REACTIONS (2)
  - FEBRILE NEUTROPENIA [None]
  - HEPATITIS B [None]
